FAERS Safety Report 9902759 (Version 2)
Quarter: 2014Q1

REPORT INFORMATION
  Report Type: Spontaneous
  Country: US (occurrence: US)
  Receive Date: 20140217
  Receipt Date: 20140313
  Transmission Date: 20141002
  Serious: No
  Sender: FDA-Public Use
  Company Number: US-PFIZER INC-2014043686

PATIENT
  Age: 65 Year
  Sex: Female

DRUGS (9)
  1. CELEBREX [Suspect]
     Dosage: UNK
  2. METRONIDAZOLE [Suspect]
     Dosage: UNK
  3. CIPROFLOXACIN [Suspect]
     Dosage: UNK
  4. ERYTHROMYCIN [Suspect]
     Dosage: UNK
  5. ZYRTEC [Suspect]
     Dosage: UNK
  6. CLARITIN [Suspect]
     Dosage: UNK
  7. BACTRIM [Suspect]
     Dosage: UNK
  8. TYLENOL [Suspect]
     Dosage: UNK
  9. PSEUDOEPHEDRINE [Suspect]
     Dosage: UNK

REACTIONS (1)
  - Drug hypersensitivity [Unknown]
